FAERS Safety Report 6897654-7 (Version None)
Quarter: 2010Q3

REPORT INFORMATION
  Report Type: 
  Country: None (occurrence: None)
  Receive Date: 20100802
  Receipt Date: 20070703
  Transmission Date: 20110219
  Serious: No
  Sender: FDA-Public Use
  Company Number: US-PFIZER INC-2007044654

PATIENT
  Sex: Female

DRUGS (6)
  1. LYRICA [Suspect]
     Indication: WHIPLASH INJURY
     Dates: start: 20070401
  2. ALTACE [Concomitant]
  3. ZOCOR [Concomitant]
  4. METFORMIN HCL [Concomitant]
  5. ALLEGRA [Concomitant]
  6. ATENOLOL [Concomitant]

REACTIONS (2)
  - ARTHRALGIA [None]
  - TENDONITIS [None]
